FAERS Safety Report 21094058 (Version 2)
Quarter: 2022Q4

REPORT INFORMATION
  Report Type: Spontaneous
  Country: US (occurrence: US)
  Receive Date: 20220718
  Receipt Date: 20221027
  Transmission Date: 20230113
  Serious: No
  Sender: FDA-Public Use
  Company Number: US-Hikma Pharmaceuticals USA Inc.-US-H14001-22-01562

PATIENT
  Age: 58 Year
  Sex: Female

DRUGS (3)
  1. KLOXXADO [Suspect]
     Active Substance: NALOXONE HYDROCHLORIDE
     Indication: Drug therapy
     Dosage: UNKNOWN
     Route: 065
  2. ALPRAZOLAM [Concomitant]
     Active Substance: ALPRAZOLAM
     Indication: Product used for unknown indication
     Route: 065
  3. OXYGEN [Concomitant]
     Active Substance: OXYGEN
     Indication: Oxygen therapy
     Dosage: UNKNOWN
     Route: 065

REACTIONS (1)
  - Off label use [Unknown]
